FAERS Safety Report 8597406-6 (Version None)
Quarter: 2012Q3

REPORT INFORMATION
  Report Type: 
  Country: None (occurrence: None)
  Receive Date: 20120801
  Receipt Date: 20120717
  Transmission Date: 20120928
  Serious: Yes (Life-Threatening)
  Sender: FDA-Public Use
  Company Number: TPA2012A05010

PATIENT
  Age: 79 Year
  Sex: Female

DRUGS (4)
  1. ADENURIC (FEBUXOSTAT) [Suspect]
     Indication: GOUT
     Dosage: 80 MG (80 MG, 1-2), ORAL
     Route: 048
     Dates: start: 20111001
  2. IRBESARTAN [Suspect]
     Indication: PRODUCT USED FOR UNKNOWN INDICATION
     Dosage: 300 MG (300 MG, 1 IN 1 D), ORAL
     Route: 048
     Dates: start: 20090101, end: 20120614
  3. SIMVASTATINE (SIMVASTATINE) [Concomitant]
  4. BISOPROLOL FUMARATE [Concomitant]

REACTIONS (6)
  - RENAL FAILURE ACUTE [None]
  - SHOCK [None]
  - VOMITING [None]
  - NAUSEA [None]
  - DEHYDRATION [None]
  - DIARRHOEA [None]
